FAERS Safety Report 22384353 (Version 1)
Quarter: 2023Q2

REPORT INFORMATION
  Report Type: Spontaneous
  Country: US (occurrence: None)
  Receive Date: 20230526
  Receipt Date: 20230526
  Transmission Date: 20230721
  Serious: No
  Sender: FDA-Public Use
  Company Number: None

PATIENT
  Sex: Male

DRUGS (16)
  1. TEMOZOLOMIDE [Suspect]
     Active Substance: TEMOZOLOMIDE
     Indication: Neuroendocrine tumour
     Dosage: FREQUENCY : BEFORE MEALS;?OTHER ROUTE : PO DAYS 1-5 Q 28 DAYS;?
     Route: 050
  2. prochorperazine [Concomitant]
  3. pantroprazole [Concomitant]
  4. VITAMIN D2 [Concomitant]
     Active Substance: ERGOCALCIFEROL
  5. BUMEX [Concomitant]
     Active Substance: BUMETANIDE
  6. TAMSULOSIN [Concomitant]
     Active Substance: TAMSULOSIN
  7. TRELEGY ELLIPTA [Concomitant]
     Active Substance: FLUTICASONE FUROATE\UMECLIDINIUM BROMIDE\VILANTEROL TRIFENATATE
  8. FINASTERIDE [Concomitant]
     Active Substance: FINASTERIDE
  9. CARVEDILOL [Concomitant]
  10. meclizine [Concomitant]
  11. TYNELOL [Concomitant]
  12. aspirin [Concomitant]
  13. ENTRESTO [Concomitant]
     Active Substance: SACUBITRIL\VALSARTAN
  14. ONDANSETRON [Concomitant]
  15. SENNA [Concomitant]
     Active Substance: SENNA LEAF\SENNOSIDES\SENNOSIDES A AND B
  16. TRAMADOL [Concomitant]

REACTIONS (2)
  - Drug ineffective [None]
  - Therapy cessation [None]
